FAERS Safety Report 16975648 (Version 1)
Quarter: 2019Q4

REPORT INFORMATION
  Report Type: Spontaneous
  Country: US (occurrence: US)
  Receive Date: 20191030
  Receipt Date: 20191030
  Transmission Date: 20200122
  Serious: No
  Sender: FDA-Public Use
  Company Number: US-COVIS PHARMA B.V.-2019COV00129

PATIENT
  Age: 58 Year
  Sex: Female
  Weight: 89.8 kg

DRUGS (2)
  1. UNSPECIFIED MEDICATIONS [Concomitant]
     Active Substance: UNSPECIFIED INGREDIENT
  2. ALVESCO [Suspect]
     Active Substance: CICLESONIDE
     Indication: PULMONARY FIBROSIS
     Dosage: 80 ?G, 2X/DAY
     Dates: start: 20190413, end: 20190423

REACTIONS (3)
  - Drug ineffective [Not Recovered/Not Resolved]
  - Chest discomfort [Recovered/Resolved]
  - Dyspnoea [Recovered/Resolved]

NARRATIVE: CASE EVENT DATE: 20190414
